FAERS Safety Report 14915889 (Version 1)
Quarter: 2018Q2

REPORT INFORMATION
  Report Type: Spontaneous
  Country: CH (occurrence: CH)
  Receive Date: 20180518
  Receipt Date: 20180518
  Transmission Date: 20180711
  Serious: Yes (Other)
  Sender: FDA-Public Use
  Company Number: CH-GILEAD-2016-0208435

PATIENT
  Age: 58 Year
  Sex: Male

DRUGS (5)
  1. SOVALDI [Suspect]
     Active Substance: SOFOSBUVIR
     Indication: CHRONIC HEPATITIS C
     Dosage: UNK
     Route: 065
     Dates: start: 20140611, end: 20141126
  2. RIBAVIRIN. [Suspect]
     Active Substance: RIBAVIRIN
     Indication: CHRONIC HEPATITIS C
     Dosage: UNK
     Route: 065
     Dates: start: 20140611, end: 20141126
  3. SEROPRAM (CITALOPRAM HYDROBROMIDE) [Concomitant]
     Active Substance: CITALOPRAM HYDROBROMIDE
  4. PARACETAMOL [Concomitant]
     Active Substance: ACETAMINOPHEN
     Dosage: UNK
  5. INDERAL [Concomitant]
     Active Substance: PROPRANOLOL HYDROCHLORIDE

REACTIONS (5)
  - Hepatitis C [Unknown]
  - Genotype drug resistance test positive [Unknown]
  - Portal vein thrombosis [Not Recovered/Not Resolved]
  - Drug ineffective [Unknown]
  - International normalised ratio increased [Not Recovered/Not Resolved]

NARRATIVE: CASE EVENT DATE: 20141223
